FAERS Safety Report 9330788 (Version 1)
Quarter: 2013Q2

REPORT INFORMATION
  Report Type: Spontaneous
  Country: US (occurrence: None)
  Receive Date: 20130604
  Receipt Date: 20130604
  Transmission Date: 20140414
  Serious: No
  Sender: FDA-Public Use
  Company Number: None

PATIENT
  Age: 18 Year
  Sex: Female

DRUGS (1)
  1. TRI-LINYAH [Suspect]
     Dosage: 1 DOSE
     Route: 048
     Dates: start: 20130210, end: 20130220

REACTIONS (3)
  - Abdominal pain upper [None]
  - Diarrhoea [None]
  - Product substitution issue [None]
